FAERS Safety Report 5197790-X (Version None)
Quarter: 2006Q4

REPORT INFORMATION
  Report Type: 
  Country: None (occurrence: None)
  Receive Date: 20061228
  Receipt Date: 20061214
  Transmission Date: 20070319
  Serious: Yes (Other)
  Sender: FDA-Public Use
  Company Number: 15370

PATIENT
  Age: 13 Year
  Sex: Male

DRUGS (1)
  1. VINCRISTINE [Suspect]

REACTIONS (2)
  - NERVE CONDUCTION STUDIES [None]
  - PERIPHERAL MOTOR NEUROPATHY [None]
